FAERS Safety Report 5930994-4 (Version None)
Quarter: 2008Q4

REPORT INFORMATION
  Report Type: 
  Country: None (occurrence: None)
  Receive Date: 20081022
  Receipt Date: 20081013
  Transmission Date: 20090506
  Serious: Yes (Death)
  Sender: FDA-Public Use
  Company Number: POMP-1000311

PATIENT
  Age: 28 Year
  Sex: Male
  Weight: 44 kg

DRUGS (3)
  1. MYOZYME [Suspect]
     Indication: GLYCOGEN STORAGE DISEASE TYPE II
     Dosage: 20 MG/KG, QOW, INTRAVENOUS
     Route: 042
     Dates: start: 20070711, end: 20080707
  2. IMIPENEM (IMIPENEM) [Concomitant]
  3. LOVENOX [Concomitant]

REACTIONS (4)
  - BACTERIAL INFECTION [None]
  - LUNG DISORDER [None]
  - MECHANICAL VENTILATION COMPLICATION [None]
  - RESPIRATORY FAILURE [None]
